FAERS Safety Report 10528514 (Version 3)
Quarter: 2014Q4

REPORT INFORMATION
  Report Type: Report from Study
  Country: CA (occurrence: CA)
  Receive Date: 20141020
  Receipt Date: 20141107
  Transmission Date: 20150528
  Serious: Yes (Other)
  Sender: FDA-Public Use
  Company Number: CA-JNJFOC-20140920980

PATIENT
  Age: 24 Year
  Sex: Female
  Weight: 49 kg

DRUGS (2)
  1. REMICADE [Suspect]
     Active Substance: INFLIXIMAB
     Indication: CROHN^S DISEASE
     Route: 042
     Dates: start: 2009
  2. REMICADE [Suspect]
     Active Substance: INFLIXIMAB
     Indication: CROHN^S DISEASE
     Route: 042
     Dates: start: 20100118

REACTIONS (5)
  - Gingivitis ulcerative [Unknown]
  - Laceration [Unknown]
  - Feeling hot [Unknown]
  - Tooth abscess [Unknown]
  - Dental necrosis [Unknown]

NARRATIVE: CASE EVENT DATE: 20141011
